FAERS Safety Report 16759792 (Version 1)
Quarter: 2019Q3

REPORT INFORMATION
  Report Type: Spontaneous
  Country: US (occurrence: US)
  Receive Date: 20190830
  Receipt Date: 20190830
  Transmission Date: 20191005
  Serious: Yes (Other)
  Sender: FDA-Public Use
  Company Number: US-SA-2018SA264976

PATIENT
  Age: 28 Year
  Sex: Male

DRUGS (1)
  1. TRIAMCINOLONE ACETONIDE. [Suspect]
     Active Substance: TRIAMCINOLONE ACETONIDE
     Indication: CURETTING OF CHALAZION
     Dosage: 0.5 ML
     Route: 026

REACTIONS (3)
  - Chorioretinopathy [Recovering/Resolving]
  - Visual impairment [Recovering/Resolving]
  - Eye oedema [Recovering/Resolving]
